FAERS Safety Report 8718028 (Version 2)
Quarter: 2012Q4

REPORT INFORMATION
  Report Type: 
  Country: US (occurrence: US)
  Receive Date: 20120810
  Receipt Date: 20120919
  Transmission Date: 20130627
  Serious: Yes (Hospitalization, Other)
  Sender: FDA-Public Use
  Company Number: US-BAYER-2012-080065

PATIENT
  Age: 49 Year
  Sex: Female

DRUGS (3)
  1. BETASERON [Suspect]
     Indication: RELAPSING-REMITTING MULTIPLE SCLEROSIS
     Dosage: UNK
     Dates: start: 19970417, end: 19980401
  2. BETASERON [Suspect]
     Indication: RELAPSING-REMITTING MULTIPLE SCLEROSIS
     Dosage: UNK
     Dates: start: 20060403, end: 20120618
  3. ANTIBIOTICS [Suspect]
     Indication: INJECTION SITE CELLULITIS

REACTIONS (12)
  - Gait disturbance [Recovering/Resolving]
  - Injection site cellulitis [Recovering/Resolving]
  - Injection site erythema [Recovering/Resolving]
  - Injection site pain [Recovering/Resolving]
  - Injection site extravasation [Recovering/Resolving]
  - Injection site fibrosis [Recovering/Resolving]
  - Injection site inflammation [Recovering/Resolving]
  - Injection site induration [Recovering/Resolving]
  - Injection site abscess [Recovering/Resolving]
  - Myositis [None]
  - Bone infarction [None]
  - Multiple sclerosis [None]
